FAERS Safety Report 6357102-2 (Version None)
Quarter: 2009Q3

REPORT INFORMATION
  Report Type: 
  Country: None (occurrence: None)
  Receive Date: 20090910
  Receipt Date: 20090825
  Transmission Date: 20100115
  Serious: Yes (Death)
  Sender: FDA-Public Use
  Company Number: 2009AL002579

PATIENT
  Sex: Female

DRUGS (19)
  1. DIGOXIN [Suspect]
     Dosage: PO
     Route: 048
  2. ATENOLOL [Concomitant]
  3. LASIX [Concomitant]
  4. LANOXIN [Concomitant]
  5. ASPIRIN [Concomitant]
  6. AMLODIPINE [Concomitant]
  7. POTASSIUM CHLORIDE [Concomitant]
  8. DIOVAN [Concomitant]
  9. PROTONIX [Concomitant]
  10. HUMALOG [Concomitant]
  11. LANTUS [Concomitant]
  12. GUAIFENESIN [Concomitant]
  13. FLAGYL [Concomitant]
  14. LEVAQUIN [Concomitant]
  15. CATAPRES [Concomitant]
  16. INDOMETHACIN [Concomitant]
  17. DYAZIDE [Concomitant]
  18. NORVASC [Concomitant]
  19. NITROFURANTOIN [Concomitant]

REACTIONS (25)
  - ASTHENIA [None]
  - ATELECTASIS [None]
  - BLINDNESS UNILATERAL [None]
  - BLOOD GLUCOSE FLUCTUATION [None]
  - CARDIAC FAILURE CONGESTIVE [None]
  - CARDIOMEGALY [None]
  - CAROTID PULSE INCREASED [None]
  - CONDITION AGGRAVATED [None]
  - CORNEAL OPACITY [None]
  - COUGH [None]
  - DYSPNOEA [None]
  - ECONOMIC PROBLEM [None]
  - EMOTIONAL DISTRESS [None]
  - FATIGUE [None]
  - FREQUENT BOWEL MOVEMENTS [None]
  - HYPOGLYCAEMIA [None]
  - INJURY [None]
  - OEDEMA PERIPHERAL [None]
  - PAIN [None]
  - PLEURAL EFFUSION [None]
  - PUPIL FIXED [None]
  - RALES [None]
  - SOCIAL PROBLEM [None]
  - URINARY TRACT INFECTION [None]
  - WHEEZING [None]
